FAERS Safety Report 8695488 (Version 2)
Quarter: 2013Q3

REPORT INFORMATION
  Report Type: Spontaneous
  Country: US (occurrence: US)
  Receive Date: 20120731
  Receipt Date: 20130806
  Transmission Date: 20140515
  Serious: Yes (Other)
  Sender: FDA-Public Use
  Company Number: US-PFIZER INC-2012180046

PATIENT
  Age: 87 Year
  Sex: Female
  Weight: 55.33 kg

DRUGS (3)
  1. REVATIO [Suspect]
     Indication: PULMONARY ARTERIAL HYPERTENSION
     Dosage: 10 MG, 2X/DAY
     Route: 048
     Dates: start: 20120712
  2. REVATIO [Suspect]
     Dosage: 10 MG, 1X/DAY
     Route: 048
  3. REVATIO [Suspect]
     Dosage: CUTTING 20 MG INTO HALF TO TAKE 10 MG
     Route: 048

REACTIONS (1)
  - Fall [Unknown]
